FAERS Safety Report 5288515-8 (Version None)
Quarter: 2007Q2

REPORT INFORMATION
  Report Type: 
  Country: None (occurrence: None)
  Receive Date: 20070405
  Receipt Date: 20070327
  Transmission Date: 20071010
  Serious: Yes (Life-Threatening, Other)
  Sender: FDA-Public Use
  Company Number: HQWYE825130JUN04

PATIENT
  Sex: Male
  Weight: 10.7 kg

DRUGS (2)
  1. BENEFIX [Suspect]
     Indication: HAEMORRHAGE
     Dosage: 1000 UNITS ON DEMAND, AS BLEEDS OCCUR (4 DAYS OF TREATMENT)
     Route: 065
     Dates: start: 20040316, end: 20040618
  2. BENEFIX [Suspect]
     Indication: FACTOR IX DEFICIENCY
     Dosage: PROPHYLACTIC BENEFIX EVERY THREE DAYS

REACTIONS (2)
  - ANAPHYLACTOID REACTION [None]
  - ANTI FACTOR IX ANTIBODY POSITIVE [None]
